FAERS Safety Report 14961089 (Version 2)
Quarter: 2018Q2

REPORT INFORMATION
  Report Type: Not Available
  Country: US (occurrence: US)
  Receive Date: 20180531
  Receipt Date: 20180620
  Transmission Date: 20180711
  Serious: Yes (Hospitalization)
  Sender: FDA-Public Use
  Company Number: US-NEUROCRINE BIOSCIENCES INC.-2018NBI01576

PATIENT
  Age: 76 Year
  Sex: Female

DRUGS (20)
  1. BUSPIRONE [Concomitant]
     Active Substance: BUSPIRONE HYDROCHLORIDE
     Dosage: ONE HALF EVERY MORNING; ONE EVERY BEDTIME
  2. PREDNISONE. [Concomitant]
     Active Substance: PREDNISONE
     Dosage: ONE EVERY MON-WED-FRI
  3. OMEPRAZOLE. [Concomitant]
     Active Substance: OMEPRAZOLE
     Indication: GASTROOESOPHAGEAL REFLUX DISEASE
  4. PROPRANOLOL [Concomitant]
     Active Substance: PROPRANOLOL HYDROCHLORIDE
  5. INGREZZA [Suspect]
     Active Substance: VALBENAZINE
     Indication: TARDIVE DYSKINESIA
     Route: 048
     Dates: start: 20180320, end: 201804
  6. XARELTO [Concomitant]
     Active Substance: RIVAROXABAN
     Dosage: IN THE MORNING
  7. MULTI VITAMIN FOR WOMEN [Concomitant]
     Dosage: IN THE MORNING
  8. DEPAKOTE [Concomitant]
     Active Substance: DIVALPROEX SODIUM
     Dosage: ONE IN THE MORNING; ONE AT BEDITME
  9. BELSOMRA [Concomitant]
     Active Substance: SUVOREXANT
     Dosage: AT BEDTIME
  10. PANTOPRAZOLE [Concomitant]
     Active Substance: PANTOPRAZOLE
     Dosage: ONE EVERY MON-WED-FRI
  11. VITAMIN B6 [Concomitant]
     Active Substance: PYRIDOXINE HYDROCHLORIDE
  12. CRESTOR [Concomitant]
     Active Substance: ROSUVASTATIN CALCIUM
     Dosage: AT BEDTIME
  13. CETIRIZINE [Concomitant]
     Active Substance: CETIRIZINE HYDROCHLORIDE
     Dosage: IN THE MORNING
  14. TRINTELLIX [Concomitant]
     Active Substance: VORTIOXETINE HYDROBROMIDE
     Dosage: IN THE MORNING
  15. MELATONIN [Concomitant]
     Active Substance: MELATONIN
     Dosage: AT BEDTIME
  16. INGREZZA [Suspect]
     Active Substance: VALBENAZINE
     Route: 048
     Dates: start: 201804
  17. LISINOPRIL. [Concomitant]
     Active Substance: LISINOPRIL
     Dates: end: 20180531
  18. LISINOPRIL. [Concomitant]
     Active Substance: LISINOPRIL
     Dates: start: 20180601
  19. CALCIUM 500/VITAMIN D [Concomitant]
     Dosage: IN THE MORNING
  20. OMEGA-3 FISH OIL [Concomitant]
     Active Substance: FISH OIL\OMEGA-3 FATTY ACIDS
     Dosage: IN THE MORNING

REACTIONS (2)
  - Pneumonia [Recovered/Resolved]
  - Somnolence [Recovered/Resolved]

NARRATIVE: CASE EVENT DATE: 201803
